FAERS Safety Report 15587723 (Version 11)
Quarter: 2021Q1

REPORT INFORMATION
  Report Type: Spontaneous
  Country: JP (occurrence: JP)
  Receive Date: 20181105
  Receipt Date: 20210216
  Transmission Date: 20210419
  Serious: Yes (Life-Threatening, Hospitalization, Disabling, Other)
  Sender: FDA-Public Use
  Company Number: PHJP2018JP018800

PATIENT
  Age: 57 Year
  Sex: Female
  Weight: 49 kg

DRUGS (4)
  1. AZOPT [Suspect]
     Active Substance: BRINZOLAMIDE
     Indication: GLAUCOMA
     Dosage: 1 GTT, BID
     Route: 047
     Dates: start: 201805, end: 20180906
  2. TIMOPTOL [Suspect]
     Active Substance: TIMOLOL
     Indication: GLAUCOMA
     Dosage: 1 DRP, BID
     Route: 047
     Dates: start: 201805
  3. TRAVATAN Z [Suspect]
     Active Substance: TRAVOPROST
     Indication: GLAUCOMA
     Dosage: 1 DRP, QD
     Route: 047
     Dates: start: 201805
  4. METHYLPREDNISOLONE. [Suspect]
     Active Substance: METHYLPREDNISOLONE
     Indication: STEVENS-JOHNSON SYNDROME
     Dosage: UNK
     Route: 061

REACTIONS (33)
  - Mucosal erosion [Recovering/Resolving]
  - Conjunctival hyperaemia [Unknown]
  - Purulent discharge [Unknown]
  - Perineal ulceration [Unknown]
  - Bacteraemia [Recovering/Resolving]
  - Toxic epidermal necrolysis [Unknown]
  - Nasopharyngitis [Unknown]
  - Trichiasis [Unknown]
  - Pneumonia staphylococcal [Recovering/Resolving]
  - Intraocular pressure increased [Unknown]
  - Malaise [Unknown]
  - Pyrexia [Unknown]
  - Disseminated intravascular coagulation [Unknown]
  - Diarrhoea [Unknown]
  - Vulvar erosion [Unknown]
  - Clostridium colitis [Unknown]
  - Symblepharon [Unknown]
  - Dyspnoea [Unknown]
  - Peripheral swelling [Unknown]
  - Erythema [Recovering/Resolving]
  - Vulvovaginal erythema [Unknown]
  - Visual field defect [Unknown]
  - Stevens-Johnson syndrome [Recovered/Resolved with Sequelae]
  - Corneal disorder [Unknown]
  - Blister [Unknown]
  - Mouth haemorrhage [Unknown]
  - Eye discharge [Unknown]
  - Venous thrombosis limb [Unknown]
  - Herpes ophthalmic [Not Recovered/Not Resolved]
  - Eye irritation [Unknown]
  - Eye inflammation [Unknown]
  - Rash [Recovering/Resolving]
  - Blepharitis [Unknown]

NARRATIVE: CASE EVENT DATE: 201809
